FAERS Safety Report 5079504-7 (Version None)
Quarter: 2006Q3

REPORT INFORMATION
  Report Type: 
  Country: None (occurrence: None)
  Receive Date: 20060814
  Receipt Date: 20050927
  Transmission Date: 20061208
  Serious: No
  Sender: FDA-Public Use
  Company Number: US-BRISTOL-MYERS SQUIBB COMPANY-13124672

PATIENT
  Age: 6 Decade
  Sex: Female

DRUGS (2)
  1. GLUCOVANCE [Suspect]
     Route: 048
     Dates: start: 20050901
  2. PLAVIX [Suspect]
     Route: 048
     Dates: start: 20050901

REACTIONS (2)
  - PRURITUS [None]
  - RASH [None]
